FAERS Safety Report 15247833 (Version 1)
Quarter: 2018Q3

REPORT INFORMATION
  Report Type: Spontaneous
  Country: US (occurrence: US)
  Receive Date: 20180713
  Receipt Date: 20180713
  Transmission Date: 20181010
  Serious: No
  Sender: FDA-Public Use
  Company Number: None

PATIENT
  Age: 24 Year
  Sex: Female

DRUGS (1)
  1. RHOPHYLAC [Suspect]
     Active Substance: HUMAN RHO(D) IMMUNE GLOBULIN

REACTIONS (15)
  - Fatigue [None]
  - Urticaria [None]
  - Arthralgia [None]
  - Gait disturbance [None]
  - Heart rate increased [None]
  - Feeling cold [None]
  - Dyspnoea [None]
  - Injection site pain [None]
  - Paraesthesia [None]
  - Hypoaesthesia [None]
  - Disturbance in attention [None]
  - Tremor [None]
  - Dizziness [None]
  - Back pain [None]
  - Amnesia [None]

NARRATIVE: CASE EVENT DATE: 20180702
